FAERS Safety Report 22230510 (Version 1)
Quarter: 2023Q2

REPORT INFORMATION
  Report Type: Spontaneous
  Country: CN (occurrence: None)
  Receive Date: 20230420
  Receipt Date: 20230420
  Transmission Date: 20230722
  Serious: Yes (Hospitalization)
  Sender: FDA-Public Use
  Company Number: CN-ROCHE-3332463

PATIENT
  Age: 71 Year
  Sex: Male
  Weight: 44 kg

DRUGS (3)
  1. HERCEPTIN [Suspect]
     Active Substance: TRASTUZUMAB
     Indication: Cardiac neoplasm malignant
     Route: 041
     Dates: start: 20230320
  2. SINTILIMAB [Suspect]
     Active Substance: SINTILIMAB
     Indication: Cardiac neoplasm malignant
     Route: 041
     Dates: start: 20230320
  3. PACLITAXEL [Suspect]
     Active Substance: PACLITAXEL
     Indication: Cardiac neoplasm malignant
     Route: 041
     Dates: start: 20230320

REACTIONS (1)
  - Myelosuppression [Recovering/Resolving]

NARRATIVE: CASE EVENT DATE: 20230412
